FAERS Safety Report 13942805 (Version 2)
Quarter: 2017Q4

REPORT INFORMATION
  Report Type: Report from Study
  Country: US (occurrence: US)
  Receive Date: 20170907
  Receipt Date: 20171207
  Transmission Date: 20180320
  Serious: Yes (Other)
  Sender: FDA-Public Use
  Company Number: US-AMGEN-USASP2017120426

PATIENT
  Age: 64 Year
  Sex: Female

DRUGS (2)
  1. BLINCYTO [Suspect]
     Active Substance: BLINATUMOMAB
     Indication: ACUTE LYMPHOCYTIC LEUKAEMIA
     Dosage: 28 MCG, UNK
     Route: 065
     Dates: start: 20170724
  2. BLINCYTO [Suspect]
     Active Substance: BLINATUMOMAB
     Dosage: 9 MCG, QD
     Route: 065

REACTIONS (10)
  - Pyrexia [Unknown]
  - Aphasia [Unknown]
  - Diplopia [Recovering/Resolving]
  - Fatigue [Unknown]
  - Swelling face [Recovered/Resolved]
  - Dysgraphia [Unknown]
  - Blood glucose increased [Unknown]
  - Flushing [Recovered/Resolved]
  - Asthenia [Recovered/Resolved]
  - Balance disorder [Unknown]

NARRATIVE: CASE EVENT DATE: 2017
